FAERS Safety Report 23934388 (Version 2)
Quarter: 2024Q3

REPORT INFORMATION
  Report Type: Spontaneous
  Country: US (occurrence: US)
  Receive Date: 20240603
  Receipt Date: 20240709
  Transmission Date: 20241016
  Serious: No
  Sender: PFIZER
  Company Number: US-PFIZER INC-PV202400013396

PATIENT
  Age: 41 Year
  Sex: Female
  Weight: 86.2 kg

DRUGS (4)
  1. PREMPRO [Suspect]
     Active Substance: ESTROGENS, CONJUGATED\MEDROXYPROGESTERONE ACETATE
     Indication: Menopause
     Dosage: 2 TABLETS ORAL DAILY/TAKE 2 TABLETS BY MOUTH DAILY
     Route: 048
     Dates: start: 20170519
  2. PREMPRO [Suspect]
     Active Substance: ESTROGENS, CONJUGATED\MEDROXYPROGESTERONE ACETATE
     Indication: Vulvovaginal dryness
     Dosage: TAKE 1 TABLET BY MOUTH DAILY
     Route: 048
  3. PREMPRO [Suspect]
     Active Substance: ESTROGENS, CONJUGATED\MEDROXYPROGESTERONE ACETATE
     Indication: Libido decreased
     Dosage: TAKE 2 TABLETS BY MOUTH DAILY
     Route: 048
  4. PREMPRO [Suspect]
     Active Substance: ESTROGENS, CONJUGATED\MEDROXYPROGESTERONE ACETATE
     Indication: Hot flush

REACTIONS (3)
  - Drug ineffective [Unknown]
  - Off label use [Unknown]
  - Contraindicated product administered [Unknown]
